FAERS Safety Report 10018417 (Version 3)
Quarter: 2014Q2

REPORT INFORMATION
  Report Type: Spontaneous
  Country: JP (occurrence: JP)
  Receive Date: 20140318
  Receipt Date: 20140611
  Transmission Date: 20141212
  Serious: Yes (Hospitalization)
  Sender: FDA-Public Use
  Company Number: JP-BAXTER-2014BAX013470

PATIENT
  Sex: Female
  Weight: 58 kg

DRUGS (2)
  1. DIANEAL-N PD-4 1.5 [Suspect]
     Indication: RENAL FAILURE CHRONIC
     Route: 033
  2. DIANEAL-N PD-4 2.5 [Suspect]
     Indication: RENAL FAILURE CHRONIC
     Route: 033

REACTIONS (1)
  - Cardiac failure [Recovered/Resolved]
